FAERS Safety Report 12905816 (Version 1)
Quarter: 2016Q4

REPORT INFORMATION
  Report Type: Spontaneous
  Country: JP (occurrence: JP)
  Receive Date: 20161103
  Receipt Date: 20161103
  Transmission Date: 20170207
  Serious: Yes (Disabling, Other)
  Sender: FDA-Public Use
  Company Number: JP-AMGEN-JPNSP2016153919

PATIENT
  Age: 70 Year
  Sex: Female
  Weight: 57.96 kg

DRUGS (1)
  1. RANMARK [Suspect]
     Active Substance: DENOSUMAB
     Indication: METASTASES TO BONE
     Dosage: 120 MG, QMO
     Route: 058
     Dates: start: 20130423, end: 20160915

REACTIONS (2)
  - Periodontitis [Not Recovered/Not Resolved]
  - Osteonecrosis of jaw [Not Recovered/Not Resolved]

NARRATIVE: CASE EVENT DATE: 20160929
